FAERS Safety Report 26045702 (Version 1)
Quarter: 2025Q4

REPORT INFORMATION
  Report Type: Spontaneous
  Country: US (occurrence: None)
  Receive Date: 20251114
  Receipt Date: 20251114
  Transmission Date: 20260118
  Serious: Yes (Other)
  Sender: BANNER
  Company Number: US-PTA-006382

PATIENT
  Age: 74 Year
  Sex: Female

DRUGS (1)
  1. NAPROXEN [Suspect]
     Active Substance: NAPROXEN
     Indication: Pain
     Dosage: 2 THE FIRST TIME, THEN TAKE 1 AS DIRECTED
     Route: 048
     Dates: start: 20251107

REACTIONS (2)
  - Foreign body in throat [Unknown]
  - Wrong technique in product usage process [Unknown]

NARRATIVE: CASE EVENT DATE: 20251107
